FAERS Safety Report 5079555-2 (Version None)
Quarter: 2006Q3

REPORT INFORMATION
  Report Type: 
  Country: None (occurrence: None)
  Receive Date: 20060811
  Receipt Date: 20060811
  Transmission Date: 20061208
  Serious: Yes (Life-Threatening)
  Sender: FDA-Public Use
  Company Number: None

PATIENT
  Sex: Male

DRUGS (3)
  1. CLOFERABINE [Suspect]
     Indication: ACUTE LEUKAEMIA
     Dosage: 38 MG   DAILY   IV DRIP
     Route: 041
     Dates: start: 20060724, end: 20060728
  2. MELPHALAN [Suspect]
     Indication: ACUTE LEUKAEMIA
     Dosage: 190 MG  ONCE  IV DRIP
     Route: 041
     Dates: start: 20060729, end: 20060729
  3. CAMPATH [Concomitant]

REACTIONS (12)
  - ASCITES [None]
  - BILIRUBIN CONJUGATED INCREASED [None]
  - BLOOD BILIRUBIN INCREASED [None]
  - BLOOD CREATININE INCREASED [None]
  - BLOOD CULTURE POSITIVE [None]
  - HAEMODIALYSIS [None]
  - HEPATOSPLENOMEGALY [None]
  - INFECTION [None]
  - NEUTROPENIA [None]
  - PATHOGEN RESISTANCE [None]
  - PSEUDOMONAS INFECTION [None]
  - SEPTIC SHOCK [None]
